FAERS Safety Report 7387462-5 (Version None)
Quarter: 2011Q1

REPORT INFORMATION
  Report Type: 
  Country: None (occurrence: None)
  Receive Date: 20110331
  Receipt Date: 20110323
  Transmission Date: 20110831
  Serious: Yes (Other)
  Sender: FDA-Public Use
  Company Number: US-ALLERGAN-1104104US

PATIENT
  Age: 84 Year
  Sex: Female

DRUGS (1)
  1. REFRESH PLUS [Suspect]
     Indication: PRODUCT USED FOR UNKNOWN INDICATION
     Dosage: UNK
     Route: 047

REACTIONS (2)
  - VISUAL ACUITY REDUCED [None]
  - VISUAL IMPAIRMENT [None]
